FAERS Safety Report 21305669 (Version 1)
Quarter: 2022Q3

REPORT INFORMATION
  Report Type: Spontaneous
  Country: US (occurrence: US)
  Receive Date: 20220908
  Receipt Date: 20220908
  Transmission Date: 20221027
  Serious: Yes (Other)
  Sender: FDA-Public Use
  Company Number: US-STRIDES ARCOLAB LIMITED-2022SP009887

PATIENT

DRUGS (3)
  1. AMANTADINE [Suspect]
     Active Substance: AMANTADINE
     Indication: Parkinson^s disease
     Dosage: UNK
     Route: 065
  2. AMANTADINE [Suspect]
     Active Substance: AMANTADINE
     Indication: Multiple sclerosis
  3. AMANTADINE [Suspect]
     Active Substance: AMANTADINE
     Indication: Extrapyramidal disorder

REACTIONS (2)
  - Corneal oedema [Unknown]
  - Off label use [Unknown]
